FAERS Safety Report 9506338 (Version 1)
Quarter: 2013Q1

REPORT INFORMATION
  Report Type: Spontaneous
  Country: US (occurrence: None)
  Receive Date: 20130301
  Receipt Date: 20130301
  Transmission Date: 20140127
  Serious: Yes (Hospitalization)
  Sender: FDA-Public Use
  Company Number: RB-45015-2012

PATIENT
  Age: 46 Year
  Sex: Male

DRUGS (1)
  1. SUBOXONE [Suspect]
     Indication: DRUG DEPENDENCE
     Dosage: (8 MG,  TOOK TABLET SIBLINGUAL)
     Route: 060
     Dates: start: 20120913, end: 20120913

REACTIONS (7)
  - Drug withdrawal syndrome [None]
  - Chest discomfort [None]
  - Anxiety [None]
  - Hyperhidrosis [None]
  - Insomnia [None]
  - Wrong technique in drug usage process [None]
  - Underdose [None]
